FAERS Safety Report 6743475-5 (Version None)
Quarter: 2010Q2

REPORT INFORMATION
  Report Type: 
  Country: None (occurrence: None)
  Receive Date: 20100525
  Receipt Date: 20091106
  Transmission Date: 20101027
  Serious: Yes (Congenital Anomaly, Other)
  Sender: FDA-Public Use
  Company Number: 2009SP036160

PATIENT
  Age: 1 Day
  Sex: Female
  Weight: 1.44 kg

DRUGS (6)
  1. BETAMETHASONE [Suspect]
     Indication: PREGNANCY
     Dosage: TRPL
     Route: 064
  2. PREDNISOLONE [Suspect]
     Indication: PREGNANCY
     Dosage: TRPL
     Route: 064
  3. METHYLPREDNISOLONE [Suspect]
     Indication: PREGNANCY
     Dosage: TRPL
     Route: 064
  4. CYCLOPHOSPHAMIDE [Suspect]
     Indication: PREGNANCY
     Dosage: TRPL
     Route: 064
  5. TRIMETHOPRIM + SULFAMETHOXAZOLE [Suspect]
     Indication: PREGNANCY
     Dosage: TRPL
     Route: 064
  6. METHYLPREDNISOLONE [Concomitant]

REACTIONS (2)
  - DRUG EXPOSURE DURING PREGNANCY [None]
  - MICROSCOPIC POLYANGIITIS [None]
